FAERS Safety Report 9227205 (Version 2)
Quarter: 2013Q3

REPORT INFORMATION
  Report Type: Spontaneous
  Country: US (occurrence: None)
  Receive Date: 20120914
  Receipt Date: 20130916
  Transmission Date: 20140515
  Serious: Yes (Other)
  Sender: FDA-Public Use
  Company Number: JPI-P-019481

PATIENT
  Age: 38 Year
  Sex: Female
  Weight: 83.01 kg

DRUGS (6)
  1. XYREM [Suspect]
     Indication: NARCOLEPSY
     Dosage: 3 GM (1.5 GM, 2 IN 1 D), ORAL
     Route: 048
     Dates: start: 20120102, end: 20120117
  2. XYREM [Suspect]
     Indication: SOMNOLENCE
     Dosage: 3 GM (1.5 GM, 2 IN 1 D), ORAL
     Route: 048
     Dates: start: 20120102, end: 20120117
  3. CITALOPRAM HYDROBROMIDE [Concomitant]
  4. METHYLPHENIDATE [Concomitant]
  5. NITROFURANTOIN [Concomitant]
  6. NORETHINDRONE [Concomitant]

REACTIONS (19)
  - Suicidal ideation [None]
  - Somnolence [None]
  - Poor quality sleep [None]
  - Initial insomnia [None]
  - Nightmare [None]
  - Night sweats [None]
  - Muscle twitching [None]
  - Dyskinesia [None]
  - Middle insomnia [None]
  - Headache [None]
  - Palpitations [None]
  - Heart rate increased [None]
  - Blood pressure increased [None]
  - Bladder spasm [None]
  - Pyrexia [None]
  - Abnormal dreams [None]
  - Hypoglycaemia [None]
  - Depression [None]
  - Condition aggravated [None]
